FAERS Safety Report 15497088 (Version 2)
Quarter: 2018Q4

REPORT INFORMATION
  Report Type: Spontaneous
  Country: IT (occurrence: IT)
  Receive Date: 20181015
  Receipt Date: 20181017
  Transmission Date: 20190205
  Serious: Yes (Life-Threatening, Hospitalization, Other)
  Sender: FDA-Public Use
  Company Number: IT-BAUSCH-BL-2018-028110

PATIENT
  Age: 34 Year
  Sex: Female

DRUGS (7)
  1. FLUCONAZOLE. [Suspect]
     Active Substance: FLUCONAZOLE
     Indication: ANTIBIOTIC THERAPY
     Route: 065
  2. TIGECYCLINE. [Suspect]
     Active Substance: TIGECYCLINE
     Indication: ANTIBIOTIC THERAPY
     Route: 065
  3. METRONIDAZOLE. [Suspect]
     Active Substance: METRONIDAZOLE
     Indication: ANTIBIOTIC THERAPY
     Route: 065
  4. CEFEPIME HYDROCHLORIDE. [Suspect]
     Active Substance: CEFEPIME HYDROCHLORIDE
     Indication: ANTIBIOTIC THERAPY
     Route: 065
  5. MEROPENEM. [Suspect]
     Active Substance: MEROPENEM
     Indication: ANTIBIOTIC THERAPY
     Route: 042
  6. TEICOPLANIN [Suspect]
     Active Substance: TEICOPLANIN
     Indication: ANTIBIOTIC THERAPY
     Route: 065
  7. CASPOFUNGIN ACETATE. [Suspect]
     Active Substance: CASPOFUNGIN ACETATE
     Indication: ANTIBIOTIC THERAPY
     Route: 065

REACTIONS (2)
  - Postoperative wound infection [Recovering/Resolving]
  - Neutropenia [Unknown]
